FAERS Safety Report 16365029 (Version 1)
Quarter: 2019Q2

REPORT INFORMATION
  Report Type: Spontaneous
  Country: JP (occurrence: JP)
  Receive Date: 20190529
  Receipt Date: 20190529
  Transmission Date: 20190711
  Serious: Yes (Other)
  Sender: FDA-Public Use
  Company Number: JP-ORION CORPORATION ORION PHARMA-ENT 2019-0032

PATIENT
  Age: 47 Year
  Sex: Female

DRUGS (8)
  1. ROPINIROLE. [Concomitant]
     Active Substance: ROPINIROLE
     Route: 065
  2. MADOPAR [Concomitant]
     Active Substance: BENSERAZIDE HYDROCHLORIDE\LEVODOPA
     Route: 065
  3. AMANTADINE. [Concomitant]
     Active Substance: AMANTADINE HYDROCHLORIDE
     Route: 065
  4. COMTAN [Suspect]
     Active Substance: ENTACAPONE
     Dosage: STRENGTH: 100 MG
     Route: 048
  5. ZONISAMIDE. [Concomitant]
     Active Substance: ZONISAMIDE
     Route: 065
  6. COMTAN [Suspect]
     Active Substance: ENTACAPONE
     Indication: PARKINSON^S DISEASE
     Dosage: STRENGTH: 100 MG
     Route: 048
  7. ARTANE [Concomitant]
     Active Substance: TRIHEXYPHENIDYL HYDROCHLORIDE
     Route: 065
  8. DULOXETINE. [Concomitant]
     Active Substance: DULOXETINE
     Route: 065

REACTIONS (5)
  - Parkinson^s disease [Unknown]
  - Appetite disorder [Unknown]
  - Illusion [Unknown]
  - Apathy [Recovered/Resolved]
  - Weight decreased [Unknown]
